FAERS Safety Report 16080917 (Version 13)
Quarter: 2021Q1

REPORT INFORMATION
  Report Type: Spontaneous
  Country: CA (occurrence: CA)
  Receive Date: 20190316
  Receipt Date: 20210320
  Transmission Date: 20210419
  Serious: Yes (Hospitalization)
  Sender: FDA-Public Use
  Company Number: CA-AUROBINDO-AUR-APL-2019-013934

PATIENT
  Age: 41 Year
  Sex: Female

DRUGS (31)
  1. ABILIFY MAINTENA [Interacting]
     Active Substance: ARIPIPRAZOLE
     Indication: PRODUCT USED FOR UNKNOWN INDICATION
     Dosage: 2 GRAM
     Route: 030
  2. ABILIFY [Interacting]
     Active Substance: ARIPIPRAZOLE
     Indication: PRODUCT USED FOR UNKNOWN INDICATION
     Dosage: 1 MILLIGRAM
     Route: 030
  3. ABILIFY [Interacting]
     Active Substance: ARIPIPRAZOLE
     Dosage: 5 MILLIGRAM
     Route: 030
  4. ABILIFY [Interacting]
     Active Substance: ARIPIPRAZOLE
     Dosage: 5 GRAM
     Route: 065
  5. QUETIAPINE FILM?COATED TABLET [Interacting]
     Active Substance: QUETIAPINE
     Dosage: 25 MILLIGRAM, ONCE A DAY
     Route: 065
  6. CYMBALTA [Interacting]
     Active Substance: DULOXETINE HYDROCHLORIDE
     Dosage: 30 MILLIGRAM
     Route: 048
  7. CYMBALTA [Interacting]
     Active Substance: DULOXETINE HYDROCHLORIDE
     Dosage: 60 MILLIGRAM
     Route: 048
  8. ABILIFY [Interacting]
     Active Substance: ARIPIPRAZOLE
     Dosage: 0.5 MILLIGRAM
     Route: 030
  9. ARIPIPRAZOLE. [Interacting]
     Active Substance: ARIPIPRAZOLE
     Indication: PRODUCT USED FOR UNKNOWN INDICATION
     Dosage: 2 GRAM
     Route: 030
  10. ABILIFY MAINTENA [Interacting]
     Active Substance: ARIPIPRAZOLE
     Dosage: 0.5 MILLIGRAM
     Route: 065
  11. ABILIFY MAINTENA [Interacting]
     Active Substance: ARIPIPRAZOLE
     Dosage: 1 MILLIGRAM
     Route: 030
  12. ABILIFY MAINTENA [Interacting]
     Active Substance: ARIPIPRAZOLE
     Dosage: UNK, ONCE A DAY
     Route: 030
  13. RIVOTRIL [Interacting]
     Active Substance: CLONAZEPAM
     Indication: INSOMNIA
     Dosage: 1 DOSAGE FORM, ONCE A DAY
     Route: 030
  14. ABILIFY MAINTENA [Interacting]
     Active Substance: ARIPIPRAZOLE
     Dosage: 2 GRAM
     Route: 029
  15. ABILIFY MAINTENA [Interacting]
     Active Substance: ARIPIPRAZOLE
     Dosage: 0.5 MILLIGRAM
     Route: 065
  16. CYMBALTA [Interacting]
     Active Substance: DULOXETINE HYDROCHLORIDE
     Indication: PRODUCT USED FOR UNKNOWN INDICATION
     Dosage: 90 MILLIGRAM
     Route: 048
  17. CYMBALTA [Interacting]
     Active Substance: DULOXETINE HYDROCHLORIDE
     Dosage: 990 MILLIGRAM
     Route: 065
  18. QUETIAPINE FILM?COATED TABLET [Suspect]
     Active Substance: QUETIAPINE
     Indication: INSOMNIA
     Dosage: 25 MILLIGRAM, ONCE A DAY
     Route: 048
  19. ABILIFY MAINTENA [Interacting]
     Active Substance: ARIPIPRAZOLE
     Dosage: 2 GRAM
     Route: 065
  20. ABILIFY [Interacting]
     Active Substance: ARIPIPRAZOLE
     Dosage: 1 MILLIGRAM
     Route: 065
  21. ABILIFY [Interacting]
     Active Substance: ARIPIPRAZOLE
     Dosage: 0.5 MILLIGRAM
     Route: 065
  22. CYMBALTA [Interacting]
     Active Substance: DULOXETINE HYDROCHLORIDE
     Indication: PRODUCT USED FOR UNKNOWN INDICATION
     Dosage: 30 MILLIGRAM
     Route: 065
  23. RIVOTRIL [Interacting]
     Active Substance: CLONAZEPAM
     Dosage: UNK
     Route: 065
  24. ABILIFY MAINTENA [Interacting]
     Active Substance: ARIPIPRAZOLE
     Indication: PRODUCT USED FOR UNKNOWN INDICATION
     Dosage: 2 GRAM
     Route: 030
  25. ABILIFY [Interacting]
     Active Substance: ARIPIPRAZOLE
     Indication: PRODUCT USED FOR UNKNOWN INDICATION
     Dosage: UNK
     Route: 030
  26. ABILIFY [Interacting]
     Active Substance: ARIPIPRAZOLE
     Indication: PRODUCT USED FOR UNKNOWN INDICATION
     Dosage: UNK
     Route: 030
  27. RIVOTRIL [Interacting]
     Active Substance: CLONAZEPAM
     Dosage: 1 DOSAGE FORM, ONCE A DAY
     Route: 048
  28. CYMBALTA [Interacting]
     Active Substance: DULOXETINE HYDROCHLORIDE
     Dosage: 60 MILLIGRAM
     Route: 065
  29. CYMBALTA [Interacting]
     Active Substance: DULOXETINE HYDROCHLORIDE
     Dosage: 90 MILLIGRAM
     Route: 065
  30. CYMBALTA [Interacting]
     Active Substance: DULOXETINE HYDROCHLORIDE
     Indication: PRODUCT USED FOR UNKNOWN INDICATION
     Dosage: 60 MILLIGRAM
     Route: 065
  31. CLONAZEPAM. [Suspect]
     Active Substance: CLONAZEPAM
     Indication: INSOMNIA
     Dosage: 1 DOSAGE FORM, ONCE A DAY
     Route: 065

REACTIONS (12)
  - Prescribed overdose [Unknown]
  - Mood altered [Unknown]
  - Prescribed underdose [Unknown]
  - Overdose [Unknown]
  - Abnormal behaviour [Unknown]
  - Intentional product use issue [Unknown]
  - Product use issue [Unknown]
  - Thinking abnormal [Unknown]
  - Product use in unapproved indication [Unknown]
  - Off label use [Unknown]
  - Stubbornness [Unknown]
  - Drug interaction [Unknown]
